FAERS Safety Report 24377912 (Version 1)
Quarter: 2024Q3

REPORT INFORMATION
  Report Type: Spontaneous
  Country: US (occurrence: None)
  Receive Date: 20240927
  Receipt Date: 20240927
  Transmission Date: 20241017
  Serious: Yes (Hospitalization)
  Sender: Public
  Company Number: None

PATIENT
  Age: 75 Year
  Sex: Male
  Weight: 82 kg

DRUGS (2)
  1. ETODOLAC [Suspect]
     Active Substance: ETODOLAC
     Indication: Pain
     Dosage: 400:00 MG TWICE A DAY ORAL
     Route: 048
     Dates: start: 20231102, end: 20240122
  2. ASPIRIN [Suspect]
     Active Substance: ASPIRIN
     Dosage: 81:00 MG DAILY ORAL
     Route: 048
     Dates: end: 20240119

REACTIONS (6)
  - Dizziness [None]
  - Abdominal pain upper [None]
  - Upper gastrointestinal haemorrhage [None]
  - Gastritis [None]
  - Duodenal ulcer [None]
  - Therapy cessation [None]

NARRATIVE: CASE EVENT DATE: 20240122
